FAERS Safety Report 16971626 (Version 1)
Quarter: 2019Q4

REPORT INFORMATION
  Report Type: Report from Study
  Country: KR (occurrence: KR)
  Receive Date: 20191029
  Receipt Date: 20191029
  Transmission Date: 20200122
  Serious: Yes (Hospitalization)
  Sender: FDA-Public Use
  Company Number: KR-CELGENEUS-KOR-20191008769

PATIENT
  Age: 74 Year
  Sex: Female
  Weight: 45.9 kg

DRUGS (4)
  1. GEMCITABINE. [Concomitant]
     Active Substance: GEMCITABINE
     Indication: PANCREATIC CARCINOMA METASTATIC
     Dosage: 1104 MILLIGRAM
     Route: 041
     Dates: start: 20180806, end: 20180910
  2. GEMCITABINE. [Concomitant]
     Active Substance: GEMCITABINE
     Dosage: 1104 MILLIGRAM
     Route: 041
     Dates: start: 20181008
  3. NAB-PACLITAXEL [Suspect]
     Active Substance: PACLITAXEL
     Dosage: 138 MILLIGRAM
     Route: 041
     Dates: start: 20181008
  4. NAB-PACLITAXEL [Suspect]
     Active Substance: PACLITAXEL
     Indication: PANCREATIC CARCINOMA METASTATIC
     Dosage: 138 MILLIGRAM
     Route: 041
     Dates: start: 20180806, end: 20180910

REACTIONS (1)
  - Neutropenic infection [Recovered/Resolved]

NARRATIVE: CASE EVENT DATE: 20180914
